FAERS Safety Report 18868488 (Version 2)
Quarter: 2021Q1

REPORT INFORMATION
  Report Type: Report from Study
  Country: US (occurrence: US)
  Receive Date: 20210209
  Receipt Date: 20210225
  Transmission Date: 20210420
  Serious: Yes (Death)
  Sender: FDA-Public Use
  Company Number: US-TRAVERE THERAPEUTICS, INC.-2020RTN00167

PATIENT
  Age: 2 Year
  Sex: Female

DRUGS (5)
  1. BANZEL [Concomitant]
     Active Substance: RUFINAMIDE
     Dosage: 200 MG, 2X/DAY
  2. CHOLIC ACID [Suspect]
     Active Substance: CHOLIC ACID
     Indication: CEREBROHEPATORENAL SYNDROME
     Dosage: 100 MG, 1X/DAY
     Dates: start: 20181202, end: 20210112
  3. NEXIUM [Concomitant]
     Active Substance: ESOMEPRAZOLE MAGNESIUM
     Dosage: 10 MG, 1X/DAY AT BEDTIME
     Route: 048
  4. EPIDIOLEX [Concomitant]
     Active Substance: CANNABIDIOL
     Dosage: 50 MG, 2X/DAY
     Route: 048
  5. KEPPRA [Concomitant]
     Active Substance: LEVETIRACETAM
     Dosage: 300 MG, 2X/DAY
     Route: 048

REACTIONS (2)
  - Abdominal pain [Unknown]
  - Disease progression [Fatal]

NARRATIVE: CASE EVENT DATE: 20210112
